FAERS Safety Report 16970186 (Version 1)
Quarter: 2019Q4

REPORT INFORMATION
  Report Type: Spontaneous
  Country: US (occurrence: US)
  Receive Date: 20190911
  Receipt Date: 20190911
  Transmission Date: 20200122
  Serious: Yes (Hospitalization)
  Sender: FDA-Public Use
  Company Number: None

PATIENT
  Age: 81 Year
  Sex: Male
  Weight: 58.97 kg

DRUGS (1)
  1. WARFARIN [Suspect]
     Active Substance: WARFARIN
     Indication: ATRIAL FIBRILLATION
     Dates: start: 20180426, end: 20180925

REACTIONS (11)
  - Fall [None]
  - Chest wall haematoma [None]
  - Haematoma [None]
  - Joint range of motion decreased [None]
  - Catheter site erythema [None]
  - Therapy cessation [None]
  - Contusion [None]
  - Haemorrhage [None]
  - Anticoagulation drug level above therapeutic [None]
  - Pain [None]
  - Swelling [None]

NARRATIVE: CASE EVENT DATE: 20180924
